FAERS Safety Report 14402541 (Version 4)
Quarter: 2018Q3

REPORT INFORMATION
  Report Type: Report from Study
  Country: FR (occurrence: FR)
  Receive Date: 20180117
  Receipt Date: 20180921
  Transmission Date: 20181010
  Serious: Yes (Hospitalization)
  Sender: FDA-Public Use
  Company Number: FR-PFIZER INC-2018019375

PATIENT
  Age: 75 Year
  Sex: Male

DRUGS (14)
  1. INLYTA [Suspect]
     Active Substance: AXITINIB
     Indication: METASTATIC RENAL CELL CARCINOMA
     Dosage: 20 MG, DAILY
     Dates: start: 201710, end: 201808
  2. ESOMEPRAZOLE [Concomitant]
     Active Substance: ESOMEPRAZOLE
     Indication: GASTROOESOPHAGEAL REFLUX DISEASE
     Dosage: UNK
     Dates: start: 201712
  3. ZOPHREN /00955301/ [Concomitant]
     Active Substance: ONDANSETRON
     Indication: NAUSEA
     Dosage: UNK
     Dates: start: 201712
  4. XYLOCAINE [Concomitant]
     Active Substance: LIDOCAINE HYDROCHLORIDE
     Indication: STOMATITIS
     Dosage: UNK
     Dates: start: 201706
  5. TRIFLUCAN [Concomitant]
     Active Substance: FLUCONAZOLE
     Indication: STOMATITIS
     Dosage: UNK
     Dates: start: 201706
  6. MYCOSTATIN [Concomitant]
     Active Substance: NYSTATIN
     Indication: STOMATITIS
     Dosage: UNK
     Dates: start: 201804
  7. GLYCO THYMOLINE [Concomitant]
     Indication: STOMATITIS
     Dosage: UNK
     Dates: start: 201706
  8. PARACETAMOL [Concomitant]
     Active Substance: ACETAMINOPHEN
     Indication: PAIN
     Dosage: UNK
     Dates: start: 201808
  9. LACTULOSE. [Concomitant]
     Active Substance: LACTULOSE
     Indication: CONSTIPATION
     Dosage: UNK
     Dates: start: 201808
  10. LOXEN /00639802/ [Concomitant]
     Active Substance: NICARDIPINE HYDROCHLORIDE
     Indication: HYPERTENSION
     Dosage: UNK
     Dates: start: 201712
  11. LEVOTHYROX [Concomitant]
     Active Substance: LEVOTHYROXINE
     Indication: HYPOTHYROIDISM
     Dosage: UNK
     Dates: start: 201808
  12. PYOSTACINE [Concomitant]
     Active Substance: PRISTINAMYCIN
     Indication: STAPHYLOCOCCAL INFECTION
     Dosage: UNK
     Dates: start: 201712, end: 201712
  13. AUGMENTIN [Concomitant]
     Active Substance: AMOXICILLIN\CLAVULANATE POTASSIUM
     Indication: ESCHERICHIA URINARY TRACT INFECTION
     Dosage: UNK
     Dates: start: 201712, end: 201712
  14. FUNGIZONE [Concomitant]
     Active Substance: AMPHOTERICIN B
     Indication: STOMATITIS
     Dosage: UNK
     Dates: start: 201706

REACTIONS (4)
  - General physical health deterioration [Recovered/Resolved]
  - General physical health deterioration [Recovered/Resolved]
  - Diarrhoea [Recovered/Resolved]
  - Asthenia [Not Recovered/Not Resolved]

NARRATIVE: CASE EVENT DATE: 20171030
